FAERS Safety Report 5384694-2 (Version None)
Quarter: 2007Q3

REPORT INFORMATION
  Report Type: 
  Country: None (occurrence: None)
  Receive Date: 20070711
  Receipt Date: 20070702
  Transmission Date: 20080115
  Serious: Yes (Life-Threatening)
  Sender: FDA-Public Use
  Company Number: IT-ABBOTT-07P-083-0373247-00

PATIENT
  Sex: Female

DRUGS (1)
  1. VECLAM [Suspect]
     Indication: BRONCHITIS
     Route: 048
     Dates: start: 20070607, end: 20070609

REACTIONS (1)
  - MYALGIA [None]
